FAERS Safety Report 23694836 (Version 1)
Quarter: 2024Q2

REPORT INFORMATION
  Report Type: Spontaneous
  Country: IN (occurrence: IN)
  Receive Date: 20240402
  Receipt Date: 20240402
  Transmission Date: 20240716
  Serious: Yes (Hospitalization, Other)
  Sender: FDA-Public Use
  Company Number: IN-MankindUS-000156

PATIENT
  Age: 78 Year
  Sex: Male

DRUGS (4)
  1. AMITRIPTYLINE [Suspect]
     Active Substance: AMITRIPTYLINE
     Indication: Trigeminal neuralgia
     Dosage: ONCE DAILY
  2. CHLORTHALIDONE [Suspect]
     Active Substance: CHLORTHALIDONE
     Indication: Hypertension
     Dosage: ONCE DAILY
  3. OXCARBAZEPINE [Suspect]
     Active Substance: OXCARBAZEPINE
     Indication: Trigeminal neuralgia
     Dosage: TWICE DAILY
  4. NIFEDIPINE [Concomitant]
     Active Substance: NIFEDIPINE
     Indication: Hypertension
     Dosage: TWICE DAILY

REACTIONS (3)
  - Hyponatraemia [Recovered/Resolved]
  - Condition aggravated [Recovering/Resolving]
  - Trigeminal neuralgia [Recovering/Resolving]
